FAERS Safety Report 6308949-X (Version None)
Quarter: 2009Q3

REPORT INFORMATION
  Report Type: 
  Country: None (occurrence: None)
  Receive Date: 20090813
  Receipt Date: 20090520
  Transmission Date: 20100115
  Serious: No
  Sender: FDA-Public Use
  Company Number: US-ALLERGAN-0907099US

PATIENT
  Age: 74 Year
  Sex: Female

DRUGS (2)
  1. COMBIGAN [Suspect]
     Indication: GLAUCOMA
     Dosage: 1 GTT, BID
     Route: 047
     Dates: end: 20090519
  2. TRAVATAN [Concomitant]
     Indication: GLAUCOMA
     Dosage: UNK, QHS
     Route: 047

REACTIONS (3)
  - EYE PRURITUS [None]
  - SOMNOLENCE [None]
  - VISION BLURRED [None]
